FAERS Safety Report 21063461 (Version 1)
Quarter: 2022Q3

REPORT INFORMATION
  Report Type: Spontaneous
  Country: BR (occurrence: BR)
  Receive Date: 20220711
  Receipt Date: 20220711
  Transmission Date: 20221026
  Serious: Yes (Other)
  Sender: FDA-Public Use
  Company Number: BR-NOVARTISPH-NVSC2022BR156477

PATIENT
  Sex: Male

DRUGS (1)
  1. METHYLPHENIDATE HYDROCHLORIDE [Suspect]
     Active Substance: METHYLPHENIDATE HYDROCHLORIDE
     Indication: Product used for unknown indication
     Dosage: 2 DOSAGE FORM (20 MG, 30 TABLETS)
     Route: 065

REACTIONS (11)
  - Choking [Recovered/Resolved]
  - Aspiration [Recovered/Resolved]
  - Dysgeusia [Recovering/Resolving]
  - Feeling abnormal [Recovering/Resolving]
  - Oropharyngeal pain [Recovering/Resolving]
  - Salivary hypersecretion [Recovering/Resolving]
  - Hypoaesthesia [Recovering/Resolving]
  - Paraesthesia [Recovering/Resolving]
  - Cold sweat [Recovering/Resolving]
  - Euphoric mood [Recovering/Resolving]
  - Pyrexia [Recovering/Resolving]
